FAERS Safety Report 5258667-4 (Version None)
Quarter: 2007Q1

REPORT INFORMATION
  Report Type: 
  Country: None (occurrence: None)
  Receive Date: 20070306
  Receipt Date: 20070306
  Transmission Date: 20070707
  Serious: Yes (Other)
  Sender: FDA-Public Use
  Company Number: None

PATIENT
  Sex: Female
  Weight: 54.4316 kg

DRUGS (1)
  1. SERTRALINE [Suspect]
     Indication: POSTPARTUM DEPRESSION
     Dosage: 50 MG 1 1/2 TABLETS DAILEY BY MOUTH
     Route: 048
     Dates: start: 20060819, end: 20060904

REACTIONS (4)
  - CONFUSIONAL STATE [None]
  - HEADACHE [None]
  - PAIN IN EXTREMITY [None]
  - PHARMACEUTICAL PRODUCT COMPLAINT [None]
